FAERS Safety Report 25770240 (Version 3)
Quarter: 2025Q4

REPORT INFORMATION
  Report Type: Spontaneous
  Country: JP (occurrence: JP)
  Receive Date: 20250907
  Receipt Date: 20251117
  Transmission Date: 20260117
  Serious: Yes (Hospitalization, Other)
  Sender: NOVARTIS
  Company Number: JP-002147023-NVSJ2025JP008837

PATIENT
  Age: 51 Year
  Sex: Female
  Weight: 65 kg

DRUGS (13)
  1. KESIMPTA [Suspect]
     Active Substance: OFATUMUMAB
     Indication: Multiple sclerosis
     Dosage: 20 MG, 4W
     Route: 058
     Dates: start: 20230831
  2. MIRABEGRON [Concomitant]
     Active Substance: MIRABEGRON
     Indication: Pollakiuria
     Dosage: 50 MG, QD
     Route: 048
     Dates: start: 20190704
  3. LOXOPROFEN [Concomitant]
     Active Substance: LOXOPROFEN
     Indication: Pain
     Dosage: 60 MG, TID
     Route: 048
     Dates: start: 20210902
  4. REBAMIPIDE [Concomitant]
     Active Substance: REBAMIPIDE
     Indication: Prophylaxis
     Dosage: 100 MG, TID
     Route: 048
     Dates: start: 20210902
  5. LIORESAL [Concomitant]
     Active Substance: BACLOFEN
     Indication: Muscle spasms
     Dosage: 10 MG, TID
     Route: 048
     Dates: start: 20230629
  6. MAGNESIUM OXIDE [Concomitant]
     Active Substance: MAGNESIUM OXIDE
     Indication: Constipation
     Dosage: 330 MG, TID
     Route: 048
     Dates: start: 20190705
  7. URAPIDIL [Concomitant]
     Active Substance: URAPIDIL
     Indication: Pollakiuria
     Dosage: 30 MG, BID
     Route: 048
     Dates: start: 20201008
  8. HERBALS [Concomitant]
     Active Substance: HERBALS
     Indication: Obesity
     Dosage: 2.5 G, TID
     Route: 048
     Dates: start: 20220331
  9. HERBALS [Concomitant]
     Active Substance: HERBALS
     Indication: Pollakiuria
     Dosage: 2.5 G, TID
     Route: 048
     Dates: start: 20231116, end: 20240110
  10. SOLIFENACIN SUCCINATE [Concomitant]
     Active Substance: SOLIFENACIN SUCCINATE
     Indication: Pollakiuria
     Dosage: 5 MG, QD
     Route: 048
     Dates: start: 20240104
  11. BROTIZOLAM [Concomitant]
     Active Substance: BROTIZOLAM
     Indication: Insomnia
     Dosage: 0.5 MG, QD
     Route: 048
     Dates: start: 20230105
  12. LORAZEPAM [Concomitant]
     Active Substance: LORAZEPAM
     Indication: Anxiety
     Dosage: 0.5 MG, TID
     Route: 048
     Dates: start: 20221006
  13. ESZOPICLONE [Concomitant]
     Active Substance: ESZOPICLONE
     Indication: Insomnia
     Dosage: 1 MG, QD
     Route: 065
     Dates: start: 20231019

REACTIONS (6)
  - Pneumonia [Recovered/Resolved]
  - Pharyngitis [Recovering/Resolving]
  - Headache [Recovering/Resolving]
  - Pyrexia [Recovered/Resolved]
  - Multiple sclerosis [Recovering/Resolving]
  - Musculoskeletal disorder [Recovering/Resolving]

NARRATIVE: CASE EVENT DATE: 20240102
